FAERS Safety Report 7825573-8 (Version None)
Quarter: 2011Q4

REPORT INFORMATION
  Report Type: 
  Country: None (occurrence: None)
  Receive Date: 20111019
  Receipt Date: 20111011
  Transmission Date: 20120403
  Serious: Yes (Death)
  Sender: FDA-Public Use
  Company Number: SK-CELGENEUS-260-50794-11101143

PATIENT
  Age: 65 Year
  Sex: Female

DRUGS (3)
  1. BISEPTOL [Concomitant]
     Indication: PROPHYLAXIS
     Route: 065
  2. MYCOMAX [Concomitant]
     Indication: PROPHYLAXIS
     Route: 065
  3. VIDAZA [Suspect]
     Route: 050
     Dates: start: 20100712, end: 20110627

REACTIONS (3)
  - ANAL INFLAMMATION [None]
  - BODY TEMPERATURE INCREASED [None]
  - PNEUMONIA FUNGAL [None]
